FAERS Safety Report 12127852 (Version 1)
Quarter: 2016Q1

REPORT INFORMATION
  Report Type: Spontaneous
  Country: FR (occurrence: FR)
  Receive Date: 20160229
  Receipt Date: 20160229
  Transmission Date: 20160526
  Serious: Yes (Congenital Anomaly)
  Sender: FDA-Public Use
  Company Number: FR-TEVA-636804ISR

PATIENT
  Age: 1 Day
  Sex: Male

DRUGS (2)
  1. SPASFON [Suspect]
     Active Substance: PHLOROGLUCINOL
  2. IBUPROFENE 200MG [Suspect]
     Active Substance: IBUPROFEN
     Indication: PAIN
     Dosage: UNIQUE INTAKE
     Route: 064
     Dates: start: 20160120

REACTIONS (6)
  - Ductus arteriosus premature closure [Recovered/Resolved]
  - Cardiotoxicity [None]
  - Maternal drugs affecting foetus [None]
  - Left ventricular hypertrophy [Recovered/Resolved]
  - Tachycardia [Recovered/Resolved]
  - Caesarean section [None]

NARRATIVE: CASE EVENT DATE: 20160120
